FAERS Safety Report 7159000-3 (Version None)
Quarter: 2010Q4

REPORT INFORMATION
  Report Type: 
  Country: None (occurrence: None)
  Receive Date: 20101214
  Receipt Date: 20100723
  Transmission Date: 20110411
  Serious: No
  Sender: FDA-Public Use
  Company Number: US-ASTRAZENECA-2010SE34491

PATIENT
  Age: 70 Year
  Sex: Female
  Weight: 88.5 kg

DRUGS (4)
  1. CRESTOR [Suspect]
     Indication: BLOOD CHOLESTEROL INCREASED
     Route: 048
     Dates: start: 20090801, end: 20090801
  2. CRESTOR [Suspect]
     Route: 048
     Dates: start: 20100717
  3. ZETIA [Concomitant]
  4. FISH OIL [Concomitant]

REACTIONS (4)
  - DYSGEUSIA [None]
  - GAIT DISTURBANCE [None]
  - MUSCLE SPASMS [None]
  - SCIATICA [None]
